FAERS Safety Report 24794878 (Version 1)
Quarter: 2024Q4

REPORT INFORMATION
  Report Type: Spontaneous
  Country: US (occurrence: None)
  Receive Date: 20241231
  Receipt Date: 20241231
  Transmission Date: 20250115
  Serious: No
  Sender: Public
  Company Number: None

PATIENT
  Sex: 0

DRUGS (2)
  1. MESALAMINE [Suspect]
     Active Substance: MESALAMINE
  2. PREDNISONE [Suspect]
     Active Substance: PREDNISONE

REACTIONS (2)
  - Dizziness [None]
  - Pulmonary fibrosis [None]
